FAERS Safety Report 7358487 (Version 3)
Quarter: 2013Q2

REPORT INFORMATION
  Report Type: Report from Study
  Country: JP (occurrence: JP)
  Receive Date: 20100419
  Receipt Date: 20130520
  Transmission Date: 20140414
  Serious: Yes (Other)
  Sender: FDA-Public Use
  Company Number: PHHY2010JP23291

PATIENT
  Age: 75 Year
  Sex: 0

DRUGS (7)
  1. AMN107 [Suspect]
     Indication: CHRONIC MYELOID LEUKAEMIA
     Dosage: 400 MG
     Route: 048
     Dates: start: 20090706, end: 20090708
  2. AMN107 [Suspect]
     Dosage: 200 MG
     Route: 048
     Dates: start: 20090713, end: 20090810
  3. AMN107 [Suspect]
     Dosage: 400 MG
     Route: 048
     Dates: start: 20090811, end: 20091105
  4. AMN107 [Suspect]
     Dosage: 800 MG
     Route: 048
     Dates: start: 20091106, end: 20120217
  5. SEROTONE [Concomitant]
     Indication: PROPHYLAXIS
     Dosage: 10 MG
     Route: 048
     Dates: start: 20090713
  6. FERROMIA [Concomitant]
     Dosage: 50 MG, UNK
     Route: 048
     Dates: end: 20120217
  7. ARGAMATE [Concomitant]
     Indication: PROPHYLAXIS
     Dosage: 50 G
     Route: 048
     Dates: end: 20120217

REACTIONS (2)
  - Pneumonia [Recovering/Resolving]
  - Blood glucose increased [Recovering/Resolving]
